FAERS Safety Report 25576419 (Version 1)
Quarter: 2025Q3

REPORT INFORMATION
  Report Type: Spontaneous
  Country: CA (occurrence: CA)
  Receive Date: 20250718
  Receipt Date: 20250718
  Transmission Date: 20251020
  Serious: Yes (Other)
  Sender: Atnahs Healthcare
  Company Number: CA-ATNAHS-ATNAHS20250704912

PATIENT
  Age: 31 Year
  Sex: Male

DRUGS (6)
  1. DIAZEPAM [Suspect]
     Active Substance: DIAZEPAM
     Indication: Product used for unknown indication
  2. EPIDIOLEX [Suspect]
     Active Substance: CANNABIDIOL
     Indication: Product used for unknown indication
     Dosage: 1 EVERY 12 HOURS
  3. EPIDIOLEX [Suspect]
     Active Substance: CANNABIDIOL
  4. EPIDIOLEX [Suspect]
     Active Substance: CANNABIDIOL
  5. EPIDIOLEX [Suspect]
     Active Substance: CANNABIDIOL
  6. EPIDIOLEX [Suspect]
     Active Substance: CANNABIDIOL

REACTIONS (3)
  - Drug interaction [Recovered/Resolved]
  - Seizure [Recovered/Resolved]
  - Somnolence [Recovered/Resolved]
